FAERS Safety Report 10085411 (Version 2)
Quarter: 2014Q3

REPORT INFORMATION
  Report Type: Spontaneous
  Country: IT (occurrence: IT)
  Receive Date: 20140418
  Receipt Date: 20140715
  Transmission Date: 20150326
  Serious: Yes (Other)
  Sender: FDA-Public Use
  Company Number: IT-ROCHE-1383439

PATIENT
  Age: 48 Year
  Sex: Female

DRUGS (6)
  1. RIVOTRIL [Suspect]
     Active Substance: CLONAZEPAM
     Indication: PRODUCT USED FOR UNKNOWN INDICATION
     Route: 048
     Dates: start: 20140203, end: 20140203
  2. SEROQUEL [Suspect]
     Active Substance: QUETIAPINE FUMARATE
     Indication: PRODUCT USED FOR UNKNOWN INDICATION
     Dosage: 03-FEB-2014
     Route: 048
     Dates: start: 20140203, end: 20140203
  3. FLUNOX [Concomitant]
     Active Substance: FLURAZEPAM HYDROCHLORIDE
     Indication: PRODUCT USED FOR UNKNOWN INDICATION
     Route: 048
     Dates: start: 20090203
  4. DEPAKINE [Concomitant]
     Active Substance: VALPROATE SODIUM
     Route: 048
     Dates: start: 20090203
  5. DEPAKINE [Suspect]
     Active Substance: VALPROATE SODIUM
     Indication: PRODUCT USED FOR UNKNOWN INDICATION
     Route: 048
     Dates: start: 20140203, end: 20140203
  6. GARDENALE [Concomitant]
     Active Substance: PHENOBARBITAL
     Route: 048
     Dates: start: 20090203

REACTIONS (5)
  - Bradykinesia [Recovering/Resolving]
  - Bradyphrenia [Recovering/Resolving]
  - Wrong patient received medication [Unknown]
  - Sopor [Recovering/Resolving]
  - Condition aggravated [Recovering/Resolving]

NARRATIVE: CASE EVENT DATE: 20140203
